FAERS Safety Report 9362936 (Version 1)
Quarter: 2013Q2

REPORT INFORMATION
  Report Type: Report from Study
  Country: FR (occurrence: FR)
  Receive Date: 20130624
  Receipt Date: 20130624
  Transmission Date: 20140414
  Serious: Yes (Hospitalization)
  Sender: FDA-Public Use
  Company Number: FR-ROCHE-1239995

PATIENT
  Age: 84 Year
  Sex: Female
  Weight: 42 kg

DRUGS (24)
  1. RITUXIMAB [Suspect]
     Indication: DIFFUSE LARGE B-CELL LYMPHOMA
     Dosage: MOST RECENT DOSE 05/DEC/2011
     Route: 042
     Dates: start: 20111205
  2. CYCLOPHOSPHAMIDE [Suspect]
     Indication: DIFFUSE LARGE B-CELL LYMPHOMA
     Dosage: MOST RECENT DOSE RECEIVED ON 05/DEC/2011
     Route: 042
     Dates: start: 20111205
  3. ONCOVIN [Suspect]
     Indication: DIFFUSE LARGE B-CELL LYMPHOMA
     Dosage: MOST RECENT DOSE RECEIVED ON 05/DEC/2011
     Route: 042
     Dates: start: 20111205
  4. PREDNISOLONE [Suspect]
     Indication: DIFFUSE LARGE B-CELL LYMPHOMA
     Dosage: MOST RECENT DOSE RECEIVED ON 08/DEC/2011
     Route: 042
     Dates: start: 20111205
  5. PLAVIX [Concomitant]
  6. RAMIPRIL [Concomitant]
  7. PROCORALAN [Concomitant]
  8. LASILIX [Concomitant]
  9. ATARAX (FRANCE) [Concomitant]
  10. BONVIVA [Concomitant]
     Route: 065
  11. CACIT D3 [Concomitant]
  12. DAFALGAN [Concomitant]
  13. FORADIL [Concomitant]
  14. MIFLONIDE [Concomitant]
  15. VENTOLINE [Concomitant]
  16. LEVEMIR [Concomitant]
  17. HUMALOG [Concomitant]
  18. BACTRIM [Concomitant]
     Route: 065
  19. ZELITREX [Concomitant]
  20. ZYLORIC [Concomitant]
  21. OMEPRAZOLE [Concomitant]
  22. HYDROCORTISONE [Concomitant]
  23. CADUET [Concomitant]
  24. ROCEPHINE [Concomitant]
     Route: 065

REACTIONS (1)
  - Sigmoiditis [Recovered/Resolved]
